FAERS Safety Report 7196725 (Version 7)
Quarter: 2013Q1

REPORT INFORMATION
  Report Type: Spontaneous
  Country: US (occurrence: US)
  Receive Date: 20091202
  Receipt Date: 20130208
  Transmission Date: 20140127
  Serious: Yes (Hospitalization)
  Sender: FDA-Public Use
  Company Number: US-BAYER-200940827NA

PATIENT
  Age: 31 Year
  Sex: Female
  Weight: 50 kg

DRUGS (6)
  1. IBUPROFEN [Concomitant]
     Indication: PAIN
     Dates: start: 2004, end: 2008
  2. FIORICET [Concomitant]
     Indication: HEADACHE
     Dates: start: 20071205
  3. AMOXICILLIN [Concomitant]
     Dosage: 500 MG, UNK
  4. YASMIN [Suspect]
     Indication: ORAL CONTRACEPTION
     Route: 048
     Dates: start: 20061020, end: 200706
  5. YASMIN [Suspect]
     Indication: MENSTRUAL CYCLE MANAGEMENT
     Route: 048
     Dates: start: 20070926, end: 20071207
  6. HYDROCODONE [Concomitant]
     Dates: start: 2006, end: 2010

REACTIONS (11)
  - Intracranial venous sinus thrombosis [Recovered/Resolved]
  - Headache [Recovered/Resolved]
  - Neck pain [Recovered/Resolved]
  - Vision blurred [Recovered/Resolved]
  - Dizziness [Recovered/Resolved]
  - Photophobia [Recovered/Resolved]
  - Nausea [Recovered/Resolved]
  - Vomiting [Recovered/Resolved]
  - Muscular weakness [Recovered/Resolved]
  - Hypoaesthesia [Recovered/Resolved]
  - Off label use [None]
